FAERS Safety Report 9462583 (Version 1)
Quarter: 2013Q3

REPORT INFORMATION
  Report Type: Spontaneous
  Country: US (occurrence: US)
  Receive Date: 20130816
  Receipt Date: 20130816
  Transmission Date: 20140515
  Serious: Yes (Other)
  Sender: FDA-Public Use
  Company Number: US-PFIZER INC-2013236170

PATIENT
  Age: 59 Year
  Sex: Female
  Weight: 92.06 kg

DRUGS (3)
  1. ZOLOFT [Suspect]
     Indication: DEPRESSION
     Dosage: 100 MG, 2X/DAY
     Route: 048
     Dates: end: 201308
  2. LIPITOR [Concomitant]
     Dosage: UNK
  3. PRAZOSIN [Concomitant]
     Dosage: 2 MG, 1X/DAY

REACTIONS (7)
  - Gastrointestinal bacterial infection [Unknown]
  - Thyroid function test abnormal [Unknown]
  - Drug withdrawal syndrome [Unknown]
  - Nervousness [Unknown]
  - Weight increased [Unknown]
  - Increased appetite [Unknown]
  - Dyspepsia [Unknown]
